FAERS Safety Report 7103126-7 (Version None)
Quarter: 2010Q4

REPORT INFORMATION
  Report Type: 
  Country: None (occurrence: None)
  Receive Date: 20101115
  Receipt Date: 20101109
  Transmission Date: 20110411
  Serious: Yes (Hospitalization)
  Sender: FDA-Public Use
  Company Number: US-GENZYME-CERZ-1001627

PATIENT

DRUGS (1)
  1. CEREZYME [Suspect]
     Indication: GAUCHER'S DISEASE
     Dosage: 62 U/KG, Q2W
     Route: 042

REACTIONS (4)
  - BONE PAIN [None]
  - CHOLELITHIASIS [None]
  - EPISTAXIS [None]
  - THROMBOCYTOPENIA [None]
